FAERS Safety Report 26030757 (Version 1)
Quarter: 2025Q4

REPORT INFORMATION
  Report Type: Spontaneous
  Country: US (occurrence: US)
  Receive Date: 20251112
  Receipt Date: 20251112
  Transmission Date: 20260118
  Serious: No
  Sender: SUNOVION
  Company Number: US-SMPA-2025SPA013493

PATIENT
  Age: 75 Year
  Sex: Male
  Weight: 82.54 kg

DRUGS (2)
  1. GEMTESA [Suspect]
     Active Substance: VIBEGRON
     Indication: Hypertonic bladder
     Dosage: 75 MG, QD
     Route: 048
     Dates: start: 20251006, end: 20251009
  2. DEXAMETHASONE [Concomitant]
     Active Substance: DEXAMETHASONE
     Indication: Cough
     Dosage: 10 ML (HALF A SHOT, ABOUT A TABLESPOON, 10 ML)
     Route: 048

REACTIONS (10)
  - Genital swelling [Recovering/Resolving]
  - Head discomfort [Unknown]
  - Disorientation [Unknown]
  - Dysuria [Unknown]
  - Cough [Unknown]
  - Headache [Recovering/Resolving]
  - Arthralgia [Not Recovered/Not Resolved]
  - Pain in extremity [Unknown]
  - Peripheral swelling [Unknown]
  - Influenza like illness [Unknown]

NARRATIVE: CASE EVENT DATE: 20251001
